FAERS Safety Report 21669295 (Version 1)
Quarter: 2022Q4

REPORT INFORMATION
  Report Type: Spontaneous
  Country: US (occurrence: None)
  Receive Date: 20221201
  Receipt Date: 20221201
  Transmission Date: 20230112
  Serious: Yes (Hospitalization)
  Sender: FDA-Public Use
  Company Number: None

PATIENT
  Age: 13 Year
  Sex: Female
  Weight: 39.6 kg

DRUGS (6)
  1. CYTARABINE [Suspect]
     Active Substance: CYTARABINE
     Dates: end: 20220920
  2. DAUNORUBICIN [Suspect]
     Active Substance: DAUNORUBICIN
     Dates: end: 20221005
  3. METHOTREXATE [Suspect]
     Active Substance: METHOTREXATE
     Dates: end: 20220928
  4. ONCASPAR [Suspect]
     Active Substance: PEGASPARGASE
     Dosage: OTHER QUANTITY : IU;?
     Dates: end: 20220924
  5. PREDNISOLONE [Suspect]
     Active Substance: PREDNISOLONE
     Dates: end: 20221012
  6. VINCRISTINE SULFATE [Suspect]
     Active Substance: VINCRISTINE SULFATE
     Dosage: OTHER QUANTITY : 5.7MG;?
     Dates: end: 20221005

REACTIONS (14)
  - Rhabdomyolysis [None]
  - Myositis [None]
  - Sepsis [None]
  - Pyrexia [None]
  - Colitis [None]
  - Necrotising myositis [None]
  - Leg amputation [None]
  - Klebsiella infection [None]
  - Thrombocytopenia [None]
  - Hyponatraemia [None]
  - Dehydration [None]
  - Peripheral artery thrombosis [None]
  - Peripheral artery occlusion [None]
  - Peripheral artery thrombosis [None]

NARRATIVE: CASE EVENT DATE: 20221114
